FAERS Safety Report 5498503-4 (Version None)
Quarter: 2007Q4

REPORT INFORMATION
  Report Type: 
  Country: None (occurrence: None)
  Receive Date: 20071025
  Receipt Date: 20071025
  Transmission Date: 20080405
  Serious: No
  Sender: FDA-Public Use
  Company Number: None

PATIENT
  Age: 55 Year
  Sex: Female
  Weight: 83.0083 kg

DRUGS (1)
  1. MORPHINE [Suspect]
     Indication: PAIN
     Dosage: 2MG Q4H PRN IV
     Route: 042
     Dates: start: 20070924

REACTIONS (2)
  - INFUSION RELATED REACTION [None]
  - PRURITUS [None]
